FAERS Safety Report 4290126-8 (Version None)
Quarter: 2004Q1

REPORT INFORMATION
  Report Type: 
  Country: None (occurrence: None)
  Receive Date: 20040209
  Receipt Date: 20040106
  Transmission Date: 20041129
  Serious: Yes (Hospitalization, Other)
  Sender: FDA-Public Use
  Company Number: USA031153198

PATIENT
  Age: 70 Year
  Sex: Female
  Weight: 81 kg

DRUGS (4)
  1. EVISTA [Suspect]
     Indication: OSTEOPOROSIS
     Dosage: 70 MG/DAY
     Dates: start: 20020301
  2. CALCIUM [Concomitant]
  3. MICARDIS [Concomitant]
  4. PREMARIN [Concomitant]

REACTIONS (1)
  - DEEP VEIN THROMBOSIS [None]
